FAERS Safety Report 8162029-X (Version None)
Quarter: 2012Q1

REPORT INFORMATION
  Report Type: 
  Country: None (occurrence: None)
  Receive Date: 20120224
  Receipt Date: 20110518
  Transmission Date: 20120608
  Serious: No
  Sender: FDA-Public Use
  Company Number: US-BRISTOL-MYERS SQUIBB COMPANY-15728710

PATIENT
  Age: 59 Year
  Sex: Female

DRUGS (1)
  1. GLUCOPHAGE [Suspect]
     Dosage: SHE TOOK 15 YEARS AGO

REACTIONS (2)
  - HYPOGLYCAEMIA [None]
  - DRUG INEFFECTIVE [None]
